FAERS Safety Report 6199709-1 (Version None)
Quarter: 2009Q2

REPORT INFORMATION
  Report Type: 
  Country: None (occurrence: None)
  Receive Date: 20090522
  Receipt Date: 20090511
  Transmission Date: 20091009
  Serious: Yes (Hospitalization, Other)
  Sender: FDA-Public Use
  Company Number: JP-PFIZER INC-2009201478

PATIENT
  Age: 62 Year

DRUGS (17)
  1. ZITHROMAX [Suspect]
     Indication: BRONCHITIS
     Dosage: UNK
     Route: 048
     Dates: start: 20090324, end: 20090326
  2. ZITHROMAX [Suspect]
     Indication: PNEUMONIA
  3. BOUFUUTSUUSHOUSAN [Suspect]
     Indication: OBESITY
     Dosage: 1 PACK
     Route: 048
     Dates: start: 20090225, end: 20090402
  4. CRAVIT [Suspect]
     Indication: PNEUMONIA
     Dosage: 200 MG, 2X/DAY
     Route: 048
     Dates: start: 20090314, end: 20090323
  5. PARIET [Suspect]
     Indication: GASTRITIS
     Dosage: 10 MG, 1X/DAY
     Route: 048
     Dates: start: 20090324, end: 20090402
  6. MUCODYNE [Concomitant]
     Dosage: UNK
     Route: 048
     Dates: start: 20090331, end: 20090421
  7. MUCOSOLVAN [Concomitant]
     Dosage: UNK
     Route: 048
     Dates: start: 20090331, end: 20090402
  8. THEOLONG [Concomitant]
     Dosage: UNK
     Route: 048
     Dates: start: 20090331, end: 20090402
  9. SALMETEROL XINAFOATE [Concomitant]
     Dosage: UNK
     Dates: start: 20090401, end: 20090401
  10. HOKUNALIN [Concomitant]
     Dosage: UNK
     Route: 062
     Dates: start: 20090401, end: 20090416
  11. MUCOSTA [Concomitant]
     Dosage: UNK
     Route: 048
     Dates: start: 20090318
  12. BLOPRESS [Concomitant]
     Dosage: UNK
     Route: 048
     Dates: start: 20040101, end: 20090402
  13. CRESTOR [Concomitant]
     Dosage: UNK
     Route: 048
     Dates: start: 20060101
  14. JUVELA NICOTINATE [Concomitant]
     Dosage: UNK
     Route: 048
     Dates: start: 20060101, end: 20090402
  15. MECOBALAMIN [Concomitant]
     Dosage: UNK
     Route: 048
     Dates: start: 20060101, end: 20090402
  16. ROCEPHIN [Concomitant]
     Dosage: UNK
     Route: 042
     Dates: start: 20090401, end: 20090401
  17. ISEPACIN [Concomitant]
     Dosage: UNK
     Route: 030
     Dates: start: 20090301, end: 20090331

REACTIONS (6)
  - BRONCHIECTASIS [None]
  - DIARRHOEA [None]
  - GASTRITIS [None]
  - INTERSTITIAL LUNG DISEASE [None]
  - MALAISE [None]
  - NASOPHARYNGITIS [None]
